FAERS Safety Report 24249368 (Version 1)
Quarter: 2024Q3

REPORT INFORMATION
  Report Type: Spontaneous
  Country: US (occurrence: None)
  Receive Date: 20240823
  Receipt Date: 20240823
  Transmission Date: 20241016
  Serious: Yes (Hospitalization)
  Sender: Public
  Company Number: None

PATIENT
  Age: 12 Year
  Sex: Female
  Weight: 45.8 kg

DRUGS (3)
  1. EMICIZUMAB [Suspect]
     Active Substance: EMICIZUMAB
     Indication: Von Willebrand^s disease
     Dosage: .43 ML 1 TIME PER WEEK SUBCUTANEOUS?
     Route: 058
     Dates: start: 20240207, end: 20240725
  2. HUMATE-P [Concomitant]
     Active Substance: HUMAN COAGULATION FACTOR VIII/VON WILLEBRAND FACTOR COMPLEX
     Dates: start: 20200804
  3. TRANEXAMIC ACID [Concomitant]
     Active Substance: TRANEXAMIC ACID
     Dates: start: 20240115

REACTIONS (2)
  - Abnormal uterine bleeding [None]
  - Anaemia [None]

NARRATIVE: CASE EVENT DATE: 20240606
